FAERS Safety Report 6433599-4 (Version None)
Quarter: 2009Q4

REPORT INFORMATION
  Report Type: 
  Country: None (occurrence: None)
  Receive Date: 20091110
  Receipt Date: 20091104
  Transmission Date: 20100525
  Serious: Yes (Hospitalization)
  Sender: FDA-Public Use
  Company Number: DE-JNJFOC-20091100924

PATIENT
  Sex: Male
  Weight: 104 kg

DRUGS (13)
  1. INFLIXIMAB [Suspect]
     Route: 042
     Dates: start: 20090812, end: 20090922
  2. INFLIXIMAB [Suspect]
     Route: 042
     Dates: start: 20090812, end: 20090922
  3. INFLIXIMAB [Suspect]
     Indication: RHEUMATOID ARTHRITIS
     Route: 042
     Dates: start: 20090812, end: 20090922
  4. METHOTREXATE [Concomitant]
     Indication: RHEUMATOID ARTHRITIS
     Route: 048
  5. PREDNISOLONE [Concomitant]
     Indication: RHEUMATOID ARTHRITIS
     Route: 048
  6. FOLSAN [Concomitant]
     Indication: PROPHYLAXIS
     Route: 048
  7. DOLO-PUREN [Concomitant]
     Indication: RHEUMATOID ARTHRITIS
     Route: 048
  8. NOVAMINSULFON [Concomitant]
     Indication: OSTEOPOROSIS PROPHYLAXIS
     Route: 048
  9. CALCILAC [Concomitant]
     Indication: OSTEOPOROSIS PROPHYLAXIS
     Route: 048
  10. PANTOPRAZOLE SODIUM [Concomitant]
     Indication: GASTROINTESTINAL DISORDER THERAPY
     Route: 048
  11. CIL [Concomitant]
     Indication: HYPERLIPIDAEMIA
     Route: 048
  12. METOHEXAL [Concomitant]
     Indication: HYPERTENSION
     Route: 048
  13. ASPIRIN [Concomitant]
     Indication: PROPHYLAXIS
     Route: 048

REACTIONS (1)
  - MONOCLONAL IMMUNOGLOBULIN PRESENT [None]
